FAERS Safety Report 20010897 (Version 1)
Quarter: 2021Q4

REPORT INFORMATION
  Report Type: Spontaneous
  Country: US (occurrence: US)
  Receive Date: 20211029
  Receipt Date: 20211029
  Transmission Date: 20220303
  Serious: No
  Sender: FDA-Public Use
  Company Number: US-JNJFOC-20211033689

PATIENT
  Age: 22 Year
  Sex: Male

DRUGS (2)
  1. TYLENOL [Suspect]
     Active Substance: ACETAMINOPHEN
     Indication: Pain
     Route: 065
     Dates: start: 20211008
  2. COVID-19 VACCINE NOS [Concomitant]
     Active Substance: COVID-19 VACCINE NOS
     Indication: Immunisation
     Route: 065
     Dates: start: 20211007

REACTIONS (3)
  - Pain [Unknown]
  - Headache [Unknown]
  - Body temperature increased [Unknown]

NARRATIVE: CASE EVENT DATE: 20211008
